FAERS Safety Report 5983378-7 (Version None)
Quarter: 2008Q4

REPORT INFORMATION
  Report Type: 
  Country: None (occurrence: None)
  Receive Date: 20081208
  Receipt Date: 20081107
  Transmission Date: 20090506
  Serious: No
  Sender: FDA-Public Use
  Company Number: US-BAYER-200814338BCC

PATIENT
  Age: 78 Year
  Sex: Female
  Weight: 64 kg

DRUGS (3)
  1. ALEVE [Suspect]
     Indication: MYALGIA
     Route: 048
     Dates: start: 20081001
  2. ASPIRIN [Concomitant]
  3. VITAMIN TAB [Concomitant]

REACTIONS (2)
  - HEADACHE [None]
  - MALAISE [None]
